FAERS Safety Report 6738114-3 (Version None)
Quarter: 2010Q2

REPORT INFORMATION
  Report Type: 
  Country: None (occurrence: None)
  Receive Date: 20100520
  Receipt Date: 20100514
  Transmission Date: 20101027
  Serious: Yes (Death, Other)
  Sender: FDA-Public Use
  Company Number: 2009US002417

PATIENT
  Age: 58 Year
  Sex: Male
  Weight: 71 kg

DRUGS (23)
  1. AMBISOME [Suspect]
     Indication: DRUG USE FOR UNKNOWN INDICATION
     Dosage: 3 MG/KG, 3XWEEKLY, IV NOS
     Route: 042
     Dates: start: 20081202, end: 20090102
  2. CERNEVIT-12 [Concomitant]
  3. FOSCAVIR [Concomitant]
  4. BICARBONATE (SODIUM BICARBONATE) [Concomitant]
  5. BICARBONATE (SODIUM BICARBONATE) [Concomitant]
  6. PARACETAMOLO (PARACETAMOL) [Concomitant]
  7. PIPERACILLIN SODIUM AND TAZOBACTAM SODIUM [Concomitant]
  8. ALIZAPRIDE (ALIZAPRIDE) [Concomitant]
  9. FARGANESSE (PROMETHAZINE HYDROCHLORIDE) [Concomitant]
  10. LINEZOLID [Concomitant]
  11. KYBERNIN (ANTITHROMBIN III) [Concomitant]
  12. POTASSIUM CHLORIDE [Concomitant]
  13. MAGNESIUM (MAGNESIUM) [Concomitant]
  14. INSULINE (INSULINE PORCINE) [Concomitant]
  15. LASIX [Concomitant]
  16. CALCIUM GLUCONATE [Concomitant]
  17. ALLOPURINOL [Concomitant]
  18. DEUTSIL (URSODEOXYCHLOIV ACID) [Concomitant]
  19. ZOFRAN [Concomitant]
  20. ARTROSILENE (KETOPRPFEN LYSINE) [Concomitant]
  21. DISSENTEN (LOPERAMIDE HYDROCHLORIDE) [Concomitant]
  22. CORDARONE [Concomitant]
  23. SOLU-MEDROL [Concomitant]

REACTIONS (4)
  - CEREBROVASCULAR ACCIDENT [None]
  - COMA [None]
  - PYREXIA [None]
  - TRANSPLANT FAILURE [None]
